FAERS Safety Report 5279490-0 (Version None)
Quarter: 2007Q1

REPORT INFORMATION
  Report Type: 
  Country: None (occurrence: None)
  Receive Date: 20070328
  Receipt Date: 20070320
  Transmission Date: 20070707
  Serious: Yes (Hospitalization, Other)
  Sender: FDA-Public Use
  Company Number: US-PFIZER INC-2006107042

PATIENT
  Sex: Female
  Weight: 63.5 kg

DRUGS (2)
  1. CELEBREX [Suspect]
     Indication: ARTHRALGIA
  2. VIOXX [Suspect]
     Dates: start: 19991201, end: 20000501

REACTIONS (3)
  - AMNESIA [None]
  - ANOSMIA [None]
  - CEREBROVASCULAR ACCIDENT [None]
